FAERS Safety Report 4358831-2 (Version None)
Quarter: 2004Q2

REPORT INFORMATION
  Report Type: 
  Country: None (occurrence: None)
  Receive Date: 20040511
  Receipt Date: 20040412
  Transmission Date: 20050107
  Serious: Yes (Life-Threatening, Other)
  Sender: FDA-Public Use
  Company Number: A-US2004-05752

PATIENT
  Age: 47 Year
  Sex: Female

DRUGS (1)
  1. TRACLEER [Suspect]
     Indication: RAYNAUD'S PHENOMENON
     Dosage: 62.5 MG, BID, ORAL
     Route: 048
     Dates: start: 20040115, end: 20040209

REACTIONS (1)
  - JAUNDICE CHOLESTATIC [None]
